FAERS Safety Report 7963104-2 (Version None)
Quarter: 2011Q4

REPORT INFORMATION
  Report Type: 
  Country: None (occurrence: None)
  Receive Date: 20111207
  Receipt Date: 20111124
  Transmission Date: 20120403
  Serious: Yes (Life-Threatening)
  Sender: FDA-Public Use
  Company Number: ES-ROCHE-771289

PATIENT
  Sex: Female
  Weight: 61.9 kg

DRUGS (14)
  1. SIMVASTATIN [Concomitant]
  2. HIDROSMIN [Concomitant]
  3. XELODA [Suspect]
     Indication: COLORECTAL CANCER
     Dosage: FREQUENCY: DAILY FOR 14 DAYS
     Route: 048
  4. AMILORIDE HYDROCHLORIDE [Concomitant]
  5. AVASTIN [Suspect]
     Route: 042
  6. AVASTIN [Suspect]
     Indication: COLORECTAL CANCER
     Dosage: FORM: VIAL. LAST DOSE PRIOR TO SAE: 08 APRIL 2011.FREQUENCY: 3 WEEKS
     Route: 042
     Dates: start: 20100611, end: 20110410
  7. OXALIPLATIN [Suspect]
     Indication: COLORECTAL CANCER
     Dosage: FORM: INFUSION. LAST DOSE PRIOR TO SAE: 08 APRIL 2011
     Route: 042
     Dates: start: 20100611, end: 20110410
  8. CAPTOPRIL [Concomitant]
  9. METFORMIN HCL [Concomitant]
     Dates: start: 20101105
  10. ENALAPRIL MALEATE [Concomitant]
     Dates: start: 20110322
  11. BROMAZEPAM [Concomitant]
     Dates: start: 20110216
  12. OXALIPLATIN [Suspect]
     Route: 042
  13. XELODA [Suspect]
  14. SPIRONOLACTONE ^ACO^ [Concomitant]
     Dates: start: 20101103

REACTIONS (3)
  - HAEMATEMESIS [None]
  - DUODENITIS [None]
  - HEPATITIS TOXIC [None]
